FAERS Safety Report 15323165 (Version 1)
Quarter: 2018Q3

REPORT INFORMATION
  Report Type: Spontaneous
  Country: US (occurrence: US)
  Receive Date: 20180827
  Receipt Date: 20180827
  Transmission Date: 20181010
  Serious: No
  Sender: FDA-Public Use
  Company Number: US-PFIZER INC-2018340763

PATIENT
  Age: 65 Year
  Sex: Female

DRUGS (1)
  1. PREMPRO [Suspect]
     Active Substance: ESTROGENS, CONJUGATED\MEDROXYPROGESTERONE ACETATE
     Dosage: 1 DF, 1X/DAY [ESTROGENS CONJUGATED: 0.625 MG/MEDROXYPROGESTERONE ACETATE: 2.5 MG]

REACTIONS (3)
  - Drug dispensing error [Unknown]
  - Drug prescribing error [Unknown]
  - Drug effect increased [Unknown]
